FAERS Safety Report 7321320-7 (Version None)
Quarter: 2011Q1

REPORT INFORMATION
  Report Type: 
  Country: None (occurrence: None)
  Receive Date: 20110228
  Receipt Date: 20100325
  Transmission Date: 20110831
  Serious: Yes (Other)
  Sender: FDA-Public Use
  Company Number: US-PFIZER INC-2010038621

PATIENT
  Sex: Female
  Weight: 54.422 kg

DRUGS (5)
  1. ATIVAN [Concomitant]
     Indication: ANXIETY
     Dosage: UP TO 2 MG, AS NEEDED
     Route: 048
  2. GEODON [Suspect]
     Indication: BIPOLAR DISORDER
     Dosage: 100 MG, 1X/DAY
     Route: 048
     Dates: start: 20100201
  3. LITHIUM [Concomitant]
     Indication: BIPOLAR DISORDER
     Dosage: 450 MG, 1X/DAY
     Route: 048
  4. METHYLPHENIDATE HYDROCHLORIDE [Concomitant]
     Indication: ATTENTION DEFICIT/HYPERACTIVITY DISORDER
     Dosage: 20 MG, 1X/DAY
     Route: 048
  5. PROPRANOLOL HYDROCHLORIDE [Concomitant]
     Indication: ANXIETY
     Dosage: UP TO 30 MG, AS NEEDED
     Route: 048

REACTIONS (1)
  - DYSPNOEA [None]
